FAERS Safety Report 5587698-X (Version None)
Quarter: 2007Q4

REPORT INFORMATION
  Report Type: 
  Country: None (occurrence: None)
  Receive Date: 20071207
  Receipt Date: 20061212
  Transmission Date: 20080405
  Serious: Yes (Other)
  Sender: FDA-Public Use
  Company Number: 2006151891

PATIENT
  Age: 1 Year
  Sex: Female

DRUGS (1)
  1. SUDAFED S.A. [Suspect]
     Indication: ACCIDENTAL EXPOSURE
     Dosage: 1 TABLET ONCE, ORAL
     Route: 048
     Dates: start: 20061212, end: 20061212

REACTIONS (2)
  - ACCIDENTAL OVERDOSE [None]
  - WRONG DRUG ADMINISTERED [None]
